FAERS Safety Report 24874106 (Version 1)
Quarter: 2025Q1

REPORT INFORMATION
  Report Type: Spontaneous
  Country: US (occurrence: None)
  Receive Date: 20250121
  Receipt Date: 20250121
  Transmission Date: 20250408
  Serious: Yes (Other)
  Sender: FDA-CTU
  Company Number: None

PATIENT
  Age: 62 Year
  Sex: Female
  Weight: 62 kg

DRUGS (1)
  1. REZDIFFRA [Suspect]
     Active Substance: RESMETIROM
     Indication: Metabolic dysfunction-associated steatohepatitis
     Dosage: DAILY ORAL
     Route: 048
     Dates: start: 20241001, end: 20250115

REACTIONS (2)
  - Ascites [None]
  - Hepatic cirrhosis [None]

NARRATIVE: CASE EVENT DATE: 20250113
